FAERS Safety Report 6508069-5 (Version None)
Quarter: 2009Q4

REPORT INFORMATION
  Report Type: 
  Country: None (occurrence: None)
  Receive Date: 20091210
  Receipt Date: 20090615
  Transmission Date: 20100525
  Serious: Yes (Other)
  Sender: FDA-Public Use
  Company Number: CIP09001316

PATIENT
  Age: 54 Year
  Sex: Female
  Weight: 61.2 kg

DRUGS (3)
  1. ACTONEL [Suspect]
     Indication: OSTEOPENIA
     Dosage: 150 MG ONE TIME ONLY, ORAL
     Route: 048
     Dates: start: 20090426, end: 20090426
  2. AMLODIPINE [Concomitant]
  3. FEXOFENADINE HCL [Concomitant]

REACTIONS (2)
  - EYE PAIN [None]
  - NAUSEA [None]
